FAERS Safety Report 15098417 (Version 1)
Quarter: 2018Q3

REPORT INFORMATION
  Report Type: Spontaneous
  Country: JP (occurrence: JP)
  Receive Date: 20180702
  Receipt Date: 20180702
  Transmission Date: 20181010
  Serious: Yes (Death, Hospitalization, Other)
  Sender: FDA-Public Use
  Company Number: PHHY2018JP022763

PATIENT
  Age: 66 Year
  Sex: Male

DRUGS (3)
  1. PACLITAXEL. [Suspect]
     Active Substance: PACLITAXEL
     Indication: GASTRIC CANCER STAGE IV
     Dosage: 80 MG/M2, QW (4 COURSES)
     Route: 065
  2. PACLITAXEL. [Suspect]
     Active Substance: PACLITAXEL
     Dosage: 80 MG/M2, QW4 ( DAY 1, 8 AND 15)
     Route: 065
  3. RAMUCIRUMAB [Suspect]
     Active Substance: RAMUCIRUMAB
     Indication: GASTRIC CANCER STAGE IV
     Dosage: 8 MG/KG, ON DAYS 1 AND 15
     Route: 065

REACTIONS (10)
  - Ascites [Recovering/Resolving]
  - Oesophageal obstruction [Recovering/Resolving]
  - Vomiting [Recovered/Resolved]
  - Malignant ascites [Recovering/Resolving]
  - Product use in unapproved indication [Unknown]
  - Eating disorder [Fatal]
  - Abdominal distension [Recovering/Resolving]
  - Diarrhoea [Recovered/Resolved]
  - Jaundice cholestatic [Fatal]
  - Neutropenia [Recovered/Resolved]
